FAERS Safety Report 5271274-2 (Version None)
Quarter: 2007Q1

REPORT INFORMATION
  Report Type: 
  Country: None (occurrence: None)
  Receive Date: 20070321
  Receipt Date: 20070314
  Transmission Date: 20070707
  Serious: Yes (Other)
  Sender: FDA-Public Use
  Company Number: GB-GILEAD-2007-0011612

PATIENT
  Age: 41 Year
  Sex: Female

DRUGS (2)
  1. VIREAD [Suspect]
  2. RITONAVIR [Suspect]

REACTIONS (1)
  - SPINAL COMPRESSION FRACTURE [None]
